FAERS Safety Report 9384225 (Version 1)
Quarter: 2013Q3

REPORT INFORMATION
  Report Type: Report from Study
  Country: CL (occurrence: CL)
  Receive Date: 20130705
  Receipt Date: 20130705
  Transmission Date: 20140515
  Serious: Yes (Hospitalization)
  Sender: FDA-Public Use
  Company Number: CL-ROCHE-1245207

PATIENT
  Age: 30 Year
  Sex: Female

DRUGS (4)
  1. ACTEMRA [Suspect]
     Indication: RHEUMATOID ARTHRITIS
     Route: 042
     Dates: start: 20120713
  2. METHOTREXATE [Suspect]
     Indication: RHEUMATOID ARTHRITIS
     Route: 048
     Dates: start: 2000
  3. VENOFER [Concomitant]
     Indication: ANAEMIA
     Route: 042
     Dates: start: 2010
  4. FOLISANIN [Concomitant]
     Indication: ANAEMIA

REACTIONS (1)
  - Arthritis [Recovering/Resolving]
